FAERS Safety Report 5574983-0 (Version None)
Quarter: 2007Q4

REPORT INFORMATION
  Report Type: 
  Country: None (occurrence: None)
  Receive Date: 20071227
  Receipt Date: 20071218
  Transmission Date: 20080405
  Serious: Yes (Hospitalization)
  Sender: FDA-Public Use
  Company Number: B0500862A

PATIENT
  Age: 26 Year
  Sex: Female

DRUGS (4)
  1. LAMICTAL [Suspect]
     Indication: DRUG USE FOR UNKNOWN INDICATION
     Dosage: 50MG PER DAY
     Route: 048
     Dates: start: 20070419, end: 20070430
  2. SEROPLEX [Suspect]
     Dosage: 10MG PER DAY
     Route: 048
     Dates: start: 20070323, end: 20070501
  3. NUREFLEX [Suspect]
     Dosage: 1TAB SINGLE DOSE
     Route: 048
     Dates: start: 20070429, end: 20070429
  4. SURMONTIL [Concomitant]
     Indication: DEPRESSION
     Route: 048
     Dates: start: 20070305, end: 20070501

REACTIONS (9)
  - EOSINOPHILIA [None]
  - EPIDERMAL NECROSIS [None]
  - GENERALISED ERYTHEMA [None]
  - HYPERTHERMIA [None]
  - LYMPHOCYTIC INFILTRATION [None]
  - ODYNOPHAGIA [None]
  - PRURITUS [None]
  - RASH MACULO-PAPULAR [None]
  - TOXIC SKIN ERUPTION [None]
